FAERS Safety Report 4777499-4 (Version None)
Quarter: 2005Q3

REPORT INFORMATION
  Report Type: 
  Country: None (occurrence: None)
  Receive Date: 20050915
  Receipt Date: 20050901
  Transmission Date: 20060218
  Serious: Yes (Other)
  Sender: FDA-Public Use
  Company Number: 217035

PATIENT
  Sex: Female

DRUGS (7)
  1. RITUXAN [Suspect]
     Indication: CHRONIC LYMPHOCYTIC LEUKAEMIA
     Dosage: Q3W, INTRAVENOUS
     Route: 042
     Dates: start: 20040419
  2. CYTOXAN [Suspect]
     Indication: CHRONIC LYMPHOCYTIC LEUKAEMIA
     Dosage: Q3W, INTRAVENOUS
     Route: 042
  3. PENTOSTATIN (PENTOSTATIN) [Suspect]
     Indication: CHRONIC LYMPHOCYTIC LEUKAEMIA
     Dosage: Q3W, INTRAVENOUS
     Route: 042
  4. ACYCLOVIR [Concomitant]
  5. DAPTOMYCIN (DAPTOMYCIN) [Concomitant]
  6. PENTAMIDINE (PENTAMIDINE) [Concomitant]
  7. DAPSONE [Concomitant]

REACTIONS (6)
  - ASTHMA [None]
  - DRUG HYPERSENSITIVITY [None]
  - DYSPNOEA [None]
  - PHARYNGITIS [None]
  - RESPIRATORY DISORDER [None]
  - RESPIRATORY TRACT INFECTION [None]
